FAERS Safety Report 7119762-8 (Version None)
Quarter: 2010Q4

REPORT INFORMATION
  Report Type: 
  Country: None (occurrence: None)
  Receive Date: 20101123
  Receipt Date: 20100809
  Transmission Date: 20110411
  Serious: No
  Sender: FDA-Public Use
  Company Number: US-BRISTOL-MYERS SQUIBB COMPANY-15231657

PATIENT
  Age: 57 Year
  Sex: Female

DRUGS (11)
  1. ONGLYZA [Suspect]
  2. PROPRANOLOL [Concomitant]
  3. NIFEDIPINE [Concomitant]
  4. CLONIDINE [Concomitant]
     Dosage: 1 DF=0.1 UINT NOS
  5. VYTORIN [Concomitant]
  6. GLUCOVANCE [Concomitant]
  7. ASPIRIN [Concomitant]
  8. HYDROCHLOROTHIAZIDE [Concomitant]
  9. FISH OIL [Concomitant]
  10. ZINC [Concomitant]
  11. VITAMIN D [Concomitant]

REACTIONS (1)
  - OEDEMA PERIPHERAL [None]
